FAERS Safety Report 6464217-7 (Version None)
Quarter: 2009Q4

REPORT INFORMATION
  Report Type: 
  Country: None (occurrence: None)
  Receive Date: 20091201
  Receipt Date: 20091119
  Transmission Date: 20100525
  Serious: Yes (Hospitalization)
  Sender: FDA-Public Use
  Company Number: PHHY2009DE51534

PATIENT
  Age: 63 Year
  Sex: Female

DRUGS (1)
  1. DIOVAN HCT [Suspect]
     Indication: HYPERTENSION
     Dosage: UNK
     Route: 048
     Dates: start: 20090101, end: 20091001

REACTIONS (6)
  - DYSPHONIA [None]
  - HYPERTENSIVE CRISIS [None]
  - NASOPHARYNGITIS [None]
  - RHINITIS [None]
  - VERTIGO [None]
  - VOMITING [None]
